FAERS Safety Report 15802616 (Version 2)
Quarter: 2019Q1

REPORT INFORMATION
  Report Type: Spontaneous
  Country: JP (occurrence: JP)
  Receive Date: 20190109
  Receipt Date: 20190219
  Transmission Date: 20190417
  Serious: Yes (Life-Threatening, Other)
  Sender: FDA-Public Use
  Company Number: JP-GALDERMA-JP18053853

PATIENT
  Age: 20 Year
  Sex: Female

DRUGS (13)
  1. EPIDUO [Suspect]
     Active Substance: ADAPALENE\BENZOYL PEROXIDE
     Route: 061
     Dates: start: 20180209, end: 20180213
  2. PREDNISOLONE. [Concomitant]
     Active Substance: PREDNISOLONE
     Dosage: 5 MG
     Route: 048
  3. FLAVITAN [Concomitant]
     Active Substance: FLAVIN ADENINE DINUCLEOTIDE
     Indication: ACNE
     Route: 048
  4. CLINAL [Concomitant]
     Indication: PIGMENTATION DISORDER
     Route: 048
  5. ALLEGRA [Concomitant]
     Active Substance: FEXOFENADINE HYDROCHLORIDE
     Indication: URTICARIA
     Route: 048
     Dates: start: 20180203, end: 20180210
  6. PYDOXAL [Concomitant]
     Active Substance: PYRIDOXAL
     Indication: ACNE
     Route: 048
  7. ALLELOCK [Concomitant]
     Active Substance: OLOPATADINE HYDROCHLORIDE
     Indication: URTICARIA
     Route: 048
     Dates: start: 20180203, end: 20180210
  8. DIFFERIN GEL [Suspect]
     Active Substance: ADAPALENE
     Dosage: 0.1%
     Route: 061
     Dates: start: 20180203
  9. FAMOTIDINE. [Concomitant]
     Active Substance: FAMOTIDINE
     Route: 048
  10. HIRUDOID [Concomitant]
     Active Substance: GLYCOSAMINOGLYCANS
     Indication: PRODUCT USED FOR UNKNOWN INDICATION
     Route: 061
  11. DIFFERIN GEL [Suspect]
     Active Substance: ADAPALENE
     Indication: ACNE
     Dosage: 0.1%
     Route: 061
     Dates: start: 2017
  12. EPIDUO [Suspect]
     Active Substance: ADAPALENE\BENZOYL PEROXIDE
     Indication: ACNE
     Route: 061
     Dates: start: 20180203, end: 20180205
  13. RULID [Concomitant]
     Active Substance: ROXITHROMYCIN
     Indication: ACNE
     Route: 048
     Dates: start: 20180203, end: 20180228

REACTIONS (5)
  - Nausea [Recovered/Resolved]
  - Swelling face [Recovered/Resolved]
  - Pigmentation disorder [Unknown]
  - Dyspnoea [Recovered/Resolved]
  - Application site erythema [Unknown]

NARRATIVE: CASE EVENT DATE: 20180206
